FAERS Safety Report 4498896-0 (Version None)
Quarter: 2004Q4

REPORT INFORMATION
  Report Type: 
  Country: None (occurrence: None)
  Receive Date: 20041111
  Receipt Date: 20041101
  Transmission Date: 20050328
  Serious: Yes (Death)
  Sender: FDA-Public Use
  Company Number: GR-BRISTOL-MYERS SQUIBB COMPANY-12750949

PATIENT
  Age: 65 Year
  Sex: Male

DRUGS (2)
  1. HYDROXYUREA [Suspect]
     Indication: CHRONIC MYELOID LEUKAEMIA
     Route: 048
  2. INTERFERON ALFA [Suspect]
     Indication: CHRONIC MYELOID LEUKAEMIA
     Dosage: DOSE VALUE 8 X 10^6 UNITS PER DAY
     Route: 058

REACTIONS (1)
  - CRYPTOGENIC ORGANIZING PNEUMONIA [None]
